FAERS Safety Report 6052066-3 (Version None)
Quarter: 2009Q1

REPORT INFORMATION
  Report Type: 
  Country: None (occurrence: None)
  Receive Date: 20090126
  Receipt Date: 20090122
  Transmission Date: 20090719
  Serious: Yes (Other)
  Sender: FDA-Public Use
  Company Number: GB-WYE-G02986609

PATIENT
  Age: 21 Year
  Sex: Female
  Weight: 33 kg

DRUGS (6)
  1. PIPERACILLIN AND TAZOBACTAM [Suspect]
     Indication: PNEUMONIA
     Route: 042
     Dates: start: 20081222, end: 20081224
  2. VALPROATE SODIUM [Concomitant]
     Indication: EPILEPSY
     Dosage: UNKNOWN
  3. AMOXICILLIN + CLAVULANATE POTASSIUM [Concomitant]
     Indication: LOWER RESPIRATORY TRACT INFECTION
     Dosage: 1.2G, FREQUENCY UNSPECIFED
     Route: 042
     Dates: start: 20081218, end: 20081222
  4. LEVETIRACETAM [Concomitant]
     Indication: EPILEPSY
     Dosage: UNKNOWN
  5. CARBAMAZEPINE [Concomitant]
     Indication: EPILEPSY
     Dosage: UNKNOWN
  6. CLARITHROMYCIN [Concomitant]
     Indication: LOWER RESPIRATORY TRACT INFECTION
     Dosage: 500MG, FREQUENCY UNSPECIFIED
     Route: 042
     Dates: start: 20081218, end: 20081223

REACTIONS (1)
  - RASH PUSTULAR [None]
